FAERS Safety Report 4617033-2 (Version None)
Quarter: 2005Q1

REPORT INFORMATION
  Report Type: 
  Country: None (occurrence: None)
  Receive Date: 20050323
  Receipt Date: 20050316
  Transmission Date: 20050727
  Serious: Yes (Hospitalization)
  Sender: FDA-Public Use
  Company Number: PHBS2005JP03769

PATIENT
  Age: 69 Year
  Sex: Female

DRUGS (2)
  1. BROMOCRIPTINE MESYLATE [Suspect]
     Indication: PARKINSON'S DISEASE
     Dosage: 10 MG/DAY
     Route: 065
  2. CABERGOLINE [Concomitant]
     Indication: PARKINSON'S DISEASE
     Dosage: 2 MG/DAY
     Route: 065

REACTIONS (2)
  - HALLUCINATION, VISUAL [None]
  - PERSECUTORY DELUSION [None]
